FAERS Safety Report 15430588 (Version 6)
Quarter: 2021Q1

REPORT INFORMATION
  Report Type: Report from Study
  Country: IE (occurrence: IE)
  Receive Date: 20180926
  Receipt Date: 20210119
  Transmission Date: 20210419
  Serious: Yes (Other)
  Sender: FDA-Public Use
  Company Number: IE-PFIZER INC-2018374829

PATIENT
  Age: 76 Year
  Sex: Female
  Weight: 70 kg

DRUGS (11)
  1. SALBUTAMOL [Concomitant]
     Active Substance: ALBUTEROL
     Dosage: 2 DF, 3X/DAY
     Route: 055
     Dates: start: 2013
  2. ALTAVITA D3 [Concomitant]
     Indication: PROPHYLAXIS
     Dosage: UNK, 2X/DAY (25000)
     Route: 048
     Dates: start: 20171001
  3. SERTRALINE [Concomitant]
     Active Substance: SERTRALINE HYDROCHLORIDE
     Indication: DEPRESSED MOOD
     Dosage: 50 MG, 1X/DAY
     Route: 048
     Dates: start: 20170831
  4. TRAMADOL. [Concomitant]
     Active Substance: TRAMADOL
     Indication: BACK PAIN
     Dosage: 50 MG, AS NEEDED
     Route: 048
     Dates: start: 20180717
  5. SYMBICORT [Concomitant]
     Active Substance: BUDESONIDE\FORMOTEROL FUMARATE DIHYDRATE
     Indication: ASTHMA
     Dosage: 2 DF, 2X/DAY
     Route: 055
     Dates: start: 2013
  6. FENTANYL. [Concomitant]
     Active Substance: FENTANYL
     Indication: BACK PAIN
     Dosage: 12 UG, 3X/DAY
     Route: 062
     Dates: start: 20180409
  7. PALBOCICLIB [Suspect]
     Active Substance: PALBOCICLIB
     Indication: BREAST CANCER
     Dosage: 125 MG, CYCLIC (ONCE PER DAY, ADMINISTERED IN 28 DAY CYCLES (21 DAYS ON, 7 DAYS OFF))
     Route: 048
     Dates: start: 20170123
  8. PALBOCICLIB [Suspect]
     Active Substance: PALBOCICLIB
     Dosage: 125 MG, CYCLIC (ONCE PER DAY, ADMINISTERED IN 28 DAY CYCLES (21 DAYS ON, 7 DAYS OFF))
     Route: 048
  9. ZIMOCLONE [Concomitant]
     Indication: INSOMNIA
     Dosage: UNK UNK, AS NEEDED (7.5)
     Route: 048
     Dates: start: 20170111
  10. PALBOCICLIB [Suspect]
     Active Substance: PALBOCICLIB
     Dosage: 125 MG, CYCLIC (ONCE PER DAY, ADMINISTERED IN 28 DAY CYCLES (21 DAYS ON, 7 DAYS OFF))
     Route: 048
     Dates: end: 20180910
  11. LETROZOLE. [Concomitant]
     Active Substance: LETROZOLE
     Indication: BREAST CANCER
     Dosage: 2.5 MG, 1X/DAY
     Route: 048
     Dates: start: 20160219

REACTIONS (2)
  - Lymphoplasmacytoid lymphoma/immunocytoma [Not Recovered/Not Resolved]
  - Second primary malignancy [Not Recovered/Not Resolved]

NARRATIVE: CASE EVENT DATE: 20180821
